FAERS Safety Report 8495493-7 (Version None)
Quarter: 2012Q3

REPORT INFORMATION
  Report Type: 
  Country: None (occurrence: None)
  Receive Date: 20120709
  Receipt Date: 20120628
  Transmission Date: 20120928
  Serious: Yes (Other)
  Sender: FDA-Public Use
  Company Number: US-ASTRAZENECA-2009UW11622

PATIENT
  Age: 55 Year
  Sex: Female
  Weight: 78 kg

DRUGS (13)
  1. COREG CR [Concomitant]
  2. DIGOXIN [Concomitant]
  3. NEXIUM [Suspect]
     Route: 048
     Dates: start: 20010101
  4. RANITIDINE [Concomitant]
     Route: 048
  5. PRILOSEC [Suspect]
     Route: 048
  6. LISINOPRIL [Concomitant]
     Route: 048
  7. ASPIRIN [Concomitant]
  8. LASIX [Concomitant]
     Route: 048
  9. NEXIUM [Suspect]
     Route: 048
  10. DICYCLOMINE [Concomitant]
  11. EPINEPHRINE HCL [Concomitant]
     Dosage: 1 MG/ML
  12. ALDACTONE [Concomitant]
  13. CARVEDILOL [Concomitant]
     Route: 048

REACTIONS (21)
  - CARDIAC FAILURE [None]
  - TERMINAL INSOMNIA [None]
  - ARTHRALGIA [None]
  - RASH [None]
  - RECTAL HAEMORRHAGE [None]
  - TEMPERATURE INTOLERANCE [None]
  - DRUG INEFFECTIVE [None]
  - SINUS DISORDER [None]
  - MUSCULOSKELETAL DISCOMFORT [None]
  - IRRITABLE BOWEL SYNDROME [None]
  - COUGH [None]
  - BACK DISORDER [None]
  - THIRST [None]
  - ANAEMIA [None]
  - PLATELET COUNT DECREASED [None]
  - ARTHRITIS [None]
  - DYSPHAGIA [None]
  - EPISTAXIS [None]
  - DYSPNOEA [None]
  - HEADACHE [None]
  - CONSTIPATION [None]
